FAERS Safety Report 25073921 (Version 1)
Quarter: 2025Q1

REPORT INFORMATION
  Report Type: Spontaneous
  Country: DE (occurrence: DE)
  Receive Date: 20250313
  Receipt Date: 20250313
  Transmission Date: 20250408
  Serious: Yes (Other)
  Sender: Unknown Manufacturer
  Company Number: None

PATIENT
  Age: 73 Year
  Sex: Female
  Weight: 49 kg

DRUGS (2)
  1. TIMOLOL MALEATE [Suspect]
     Active Substance: TIMOLOL MALEATE
     Indication: Glaucoma
     Dosage: ONE DROP PER EYE IN THE MORNING AND EVENING.
     Route: 047
     Dates: start: 20241225, end: 20250207
  2. TIMOLOL MALEATE [Suspect]
     Active Substance: TIMOLOL MALEATE
     Indication: Intraocular pressure increased

REACTIONS (4)
  - Loss of consciousness [Not Recovered/Not Resolved]
  - General physical health deterioration [Unknown]
  - Dizziness [Not Recovered/Not Resolved]
  - Nausea [Unknown]

NARRATIVE: CASE EVENT DATE: 20241231
